FAERS Safety Report 9580664 (Version 2)
Quarter: 2014Q3

REPORT INFORMATION
  Report Type: Spontaneous
  Country: US (occurrence: None)
  Receive Date: 20130916
  Receipt Date: 20140915
  Transmission Date: 20150326
  Serious: Yes (Other)
  Sender: FDA-Public Use
  Company Number: JPI-P-033669

PATIENT
  Age: 53 Year
  Sex: Female
  Weight: 85.28 kg

DRUGS (10)
  1. GABAPENTIN ENACARBIL EXTENDED-RELEASE [Concomitant]
  2. ASPIRIN. [Concomitant]
     Active Substance: ASPIRIN
  3. XYREM [Suspect]
     Active Substance: SODIUM OXYBATE
     Indication: SOMNOLENCE
     Dosage: 4.5GM (2.25GM, 2 IN 1D) ORAL
     Route: 048
     Dates: start: 20130531
  4. TIZANIDINE [Concomitant]
     Active Substance: TIZANIDINE
  5. ALBUTEROL SULFATE (INHALANT) [Concomitant]
  6. MOMETASONE FUROATE. [Concomitant]
     Active Substance: MOMETASONE FUROATE
  7. NAPROXEN. [Concomitant]
     Active Substance: NAPROXEN
  8. XYREM [Suspect]
     Active Substance: SODIUM OXYBATE
     Indication: NARCOLEPSY
     Dosage: 4.5GM (2.25GM, 2 IN 1D) ORAL
     Route: 048
     Dates: start: 20130531
  9. ROSUVASTATIN CALCIUM [Concomitant]
     Active Substance: ROSUVASTATIN CALCIUM
  10. OMEPRAZOLE. [Concomitant]
     Active Substance: OMEPRAZOLE

REACTIONS (11)
  - Headache [None]
  - Hypertension [None]
  - Migraine [None]
  - Chest discomfort [None]
  - Ulcer [None]
  - Condition aggravated [None]
  - Tremor [None]
  - Feeling abnormal [None]
  - Blood pressure increased [None]
  - Blood pressure fluctuation [None]
  - Weight decreased [None]

NARRATIVE: CASE EVENT DATE: 20130701
